FAERS Safety Report 7852578-3 (Version None)
Quarter: 2011Q4

REPORT INFORMATION
  Report Type: 
  Country: None (occurrence: None)
  Receive Date: 20111026
  Receipt Date: 20111018
  Transmission Date: 20120403
  Serious: Yes (Hospitalization)
  Sender: FDA-Public Use
  Company Number: US-GLAXOSMITHKLINE-A0914647A

PATIENT
  Age: 49 Year
  Sex: Male
  Weight: 88.6 kg

DRUGS (5)
  1. METFORMIN HCL [Concomitant]
  2. GLYNASE [Concomitant]
  3. GLYBURIDE [Concomitant]
  4. AVANDIA [Suspect]
     Indication: DIABETES MELLITUS
     Dosage: 4MG TWICE PER DAY
     Route: 048
     Dates: start: 19990920, end: 20070625
  5. AVANDAMET [Suspect]
     Indication: DIABETES MELLITUS
     Route: 065
     Dates: end: 20070101

REACTIONS (4)
  - IRRITABILITY [None]
  - MYOCARDIAL INFARCTION [None]
  - CARDIAC FAILURE CONGESTIVE [None]
  - AMNESIA [None]
